FAERS Safety Report 16883189 (Version 1)
Quarter: 2019Q4

REPORT INFORMATION
  Report Type: Spontaneous
  Country: US (occurrence: US)
  Receive Date: 20191004
  Receipt Date: 20191004
  Transmission Date: 20200122
  Serious: No
  Sender: FDA-Public Use
  Company Number: US-SA-2019SA197403

PATIENT
  Age: 12 Year
  Sex: Female

DRUGS (19)
  1. DUPIXENT [Suspect]
     Active Substance: DUPILUMAB
     Indication: DERMATITIS ATOPIC
     Dosage: 300 MG, QOW, INJECTION
     Route: 058
     Dates: start: 20190218
  2. MUPIROCIN. [Concomitant]
     Active Substance: MUPIROCIN
     Dosage: UNK UNK, UNK
     Route: 065
  3. ELIDEL [Concomitant]
     Active Substance: PIMECROLIMUS
     Dosage: UNK UNK, UNK
     Route: 065
  4. MONTELUKAST [Concomitant]
     Active Substance: MONTELUKAST SODIUM
     Dosage: UNK UNK, UNK`
     Route: 065
  5. PROVENTIL [Concomitant]
     Active Substance: ALBUTEROL
     Dosage: UNK UNK, UNK
     Route: 065
  6. DULERA [Concomitant]
     Active Substance: FORMOTEROL FUMARATE DIHYDRATE\MOMETASONE FUROATE
     Dosage: UNK UNK, UNK
     Route: 065
  7. RANITIDINE. [Concomitant]
     Active Substance: RANITIDINE
     Dosage: UNK UNK, UNK
     Route: 065
  8. ZYRTEC [Concomitant]
     Active Substance: CETIRIZINE HYDROCHLORIDE
     Dosage: UNK UNK, UNK
     Route: 065
  9. HYDROCORT [HYDROCORTISONE ACETATE] [Concomitant]
     Dosage: UNK UNK, UNK
     Route: 065
  10. SINGULAIR [Concomitant]
     Active Substance: MONTELUKAST SODIUM
     Dosage: UNK UNK, UNK
     Route: 065
  11. BENADRYL [Concomitant]
     Active Substance: DIPHENHYDRAMINE HYDROCHLORIDE
     Dosage: UNK UNK, UNK
     Route: 065
  12. PROTOPIC [Concomitant]
     Active Substance: TACROLIMUS
     Dosage: UNK UNK, UNK
     Route: 065
  13. CETRIZINE [Concomitant]
     Active Substance: CETIRIZINE HYDROCHLORIDE
     Dosage: UNK UNK, UNK
     Route: 065
  14. BETAMETH [BETAMETHASONE SODIUM PHOSPHATE] [Concomitant]
     Dosage: UNK UNK, UNK
     Route: 065
  15. SYMBICORT [Concomitant]
     Active Substance: BUDESONIDE\FORMOTEROL FUMARATE DIHYDRATE
     Dosage: UNK UNK, UNK
     Route: 065
  16. FLONASE [Concomitant]
     Active Substance: FLUTICASONE PROPIONATE
     Dosage: UNK UNK, UNK
     Route: 065
  17. DESONIDE. [Concomitant]
     Active Substance: DESONIDE
     Dosage: UNK UNK, UNK
     Route: 065
  18. EPIPEN [Concomitant]
     Active Substance: EPINEPHRINE
     Dosage: UNK UNK, UNK
     Route: 065
  19. TRIAMCINOLONE [Concomitant]
     Active Substance: TRIAMCINOLONE

REACTIONS (2)
  - Product use issue [Unknown]
  - Dermatitis atopic [Not Recovered/Not Resolved]
